FAERS Safety Report 8467370-9 (Version None)
Quarter: 2012Q2

REPORT INFORMATION
  Report Type: 
  Country: None (occurrence: None)
  Receive Date: 20120626
  Receipt Date: 20120611
  Transmission Date: 20120825
  Serious: Yes (Death)
  Sender: FDA-Public Use
  Company Number: IT-WATSON-2012-10245

PATIENT
  Age: 83 Year
  Sex: Female

DRUGS (1)
  1. METFORMIN HCL [Suspect]
     Indication: DIABETES MELLITUS
     Dosage: 500 MG, BID
     Route: 065

REACTIONS (3)
  - LACTIC ACIDOSIS [None]
  - RENAL FAILURE [None]
  - SEPSIS [None]
